FAERS Safety Report 5606616-9 (Version None)
Quarter: 2008Q1

REPORT INFORMATION
  Report Type: 
  Country: None (occurrence: None)
  Receive Date: 20080129
  Receipt Date: 20080118
  Transmission Date: 20080703
  Serious: Yes (Other)
  Sender: FDA-Public Use
  Company Number: US-SANOFI-SYNTHELABO-A03200706607

PATIENT
  Sex: Male
  Weight: 141.5 kg

DRUGS (1)
  1. AMBIEN [Suspect]
     Indication: INSOMNIA
     Dosage: UNK
     Route: 048

REACTIONS (2)
  - DYSPHAGIA [None]
  - OESOPHAGEAL STENOSIS [None]
